FAERS Safety Report 20390718 (Version 1)
Quarter: 2022Q1

REPORT INFORMATION
  Report Type: Spontaneous
  Country: US (occurrence: None)
  Receive Date: 20220127
  Receipt Date: 20220127
  Transmission Date: 20220423
  Serious: Yes (Hospitalization)
  Sender: FDA-Public Use
  Company Number: None

PATIENT
  Age: 82 Year
  Sex: Male
  Weight: 86.2 kg

DRUGS (21)
  1. CASIRIVIMAB [Suspect]
     Active Substance: CASIRIVIMAB
     Indication: COVID-19
     Dosage: FREQUENCY : ONCE;?
     Route: 042
     Dates: start: 20210903, end: 20210903
  2. IMDEVIMAB [Suspect]
     Active Substance: IMDEVIMAB
     Indication: COVID-19
     Dosage: FREQUENCY : ONCE;?
     Route: 042
     Dates: start: 20210903, end: 20210903
  3. AZITHROMYCIN [Concomitant]
     Active Substance: AZITHROMYCIN
     Dates: end: 20210908
  4. CEFTRIAXONE [Concomitant]
     Active Substance: CEFTRIAXONE
     Dates: end: 20210905
  5. CEFEPIME [Concomitant]
     Active Substance: CEFEPIME HYDROCHLORIDE
     Dates: start: 20210903, end: 20210903
  6. DEXAMETHASONE [Concomitant]
     Active Substance: DEXAMETHASONE
     Dates: start: 20210903, end: 20210905
  7. VANCOMYCIN [Concomitant]
     Active Substance: VANCOMYCIN
     Dates: start: 20210903, end: 20210903
  8. ACETAMINOPHEN [Concomitant]
     Active Substance: ACETAMINOPHEN
     Dates: start: 20210903, end: 20210903
  9. ASCORBIC ACID [Concomitant]
     Active Substance: ASCORBIC ACID
     Dates: end: 20210905
  10. CHOLECALCIFEROL [Concomitant]
     Active Substance: CHOLECALCIFEROL
     Dates: end: 20210905
  11. ZINC SULFATE [Concomitant]
     Active Substance: ZINC SULFATE
     Dates: end: 20210905
  12. NS 0.9% infusion [Concomitant]
     Dates: start: 20210903, end: 20210903
  13. HYDROCHLOROTHIAZIDE [Concomitant]
     Active Substance: HYDROCHLOROTHIAZIDE
     Dates: end: 20210904
  14. AMLODIPINE [Concomitant]
     Active Substance: AMLODIPINE BESYLATE
     Dates: end: 20210904
  15. APIXABAN [Concomitant]
     Active Substance: APIXABAN
  16. Atorovastatin [Concomitant]
  17. LOSARTAN [Concomitant]
     Active Substance: LOSARTAN
  18. METOPROLOL SUCCINATE [Concomitant]
     Active Substance: METOPROLOL SUCCINATE
  19. KCL 40 meq [Concomitant]
     Dates: end: 20210905
  20. CEFPODOXIME [Concomitant]
     Active Substance: CEFPODOXIME
     Dates: end: 20210907
  21. Omega-3/dha/epa/fish oil [Concomitant]

REACTIONS (9)
  - Micturition urgency [None]
  - Pollakiuria [None]
  - Chills [None]
  - Oxygen saturation decreased [None]
  - Body temperature increased [None]
  - Heart rate increased [None]
  - Atrial fibrillation [None]
  - Blood pressure increased [None]
  - Infusion related reaction [None]

NARRATIVE: CASE EVENT DATE: 20210903
